FAERS Safety Report 15042907 (Version 1)
Quarter: 2018Q2

REPORT INFORMATION
  Report Type: Spontaneous
  Country: FR (occurrence: FR)
  Receive Date: 20180621
  Receipt Date: 20180621
  Transmission Date: 20180711
  Serious: Yes (Other)
  Sender: FDA-Public Use
  Company Number: FR-MYLANLABS-2018M1041058

PATIENT
  Age: 37 Year
  Sex: Male
  Weight: 95 kg

DRUGS (5)
  1. CEFEPIME [Suspect]
     Active Substance: CEFEPIME HYDROCHLORIDE
     Indication: POSTOPERATIVE WOUND INFECTION
     Dosage: 2 G, QD
     Route: 042
     Dates: start: 20180227, end: 20180227
  2. VANCOMYCINE SANDOZ [Suspect]
     Active Substance: VANCOMYCIN
     Indication: POSTOPERATIVE WOUND INFECTION
     Dosage: 1500 MG, QD
     Route: 042
     Dates: start: 20180227, end: 20180227
  3. BUPIVACAINE MYLAN [Suspect]
     Active Substance: BUPIVACAINE
     Indication: SPINAL ANAESTHESIA
     Dosage: 5 MG, TOTAL
     Route: 024
     Dates: start: 20180227, end: 20180227
  4. SUFENTANIL MYLAN [Suspect]
     Active Substance: SUFENTANIL
     Indication: SPINAL ANAESTHESIA
     Dosage: 2 ?G, TOTAL
     Route: 024
     Dates: start: 20180227, end: 20180227
  5. MORPHINE                           /00036303/ [Suspect]
     Active Substance: MORPHINE HYDROCHLORIDE
     Indication: SPINAL ANAESTHESIA
     Dosage: 100 ?G, TOTAL
     Route: 024
     Dates: start: 20180227, end: 20180227

REACTIONS (1)
  - Rash pruritic [Recovered/Resolved]

NARRATIVE: CASE EVENT DATE: 20180227
